FAERS Safety Report 5003595-2 (Version None)
Quarter: 2006Q2

REPORT INFORMATION
  Report Type: 
  Country: None (occurrence: None)
  Receive Date: 20060510
  Receipt Date: 20060505
  Transmission Date: 20061013
  Serious: Yes (Hospitalization)
  Sender: FDA-Public Use
  Company Number: HQWYE203405MAY06

PATIENT
  Age: 60 Year
  Sex: Male

DRUGS (5)
  1. CORDARONE [Suspect]
     Indication: ARRHYTHMIA
     Dosage: TOTALLY 10G OVER 3 - 4 WEEKS INTRAVENOUS
     Route: 042
     Dates: start: 20060331, end: 20060424
  2. PROPOFOL [Concomitant]
  3. PARACET (PARACETAMOL) [Concomitant]
  4. FRAGMIN [Concomitant]
  5. NEXIUM [Concomitant]

REACTIONS (1)
  - PARALYSIS [None]
